FAERS Safety Report 20159967 (Version 1)
Quarter: 2021Q4

REPORT INFORMATION
  Report Type: Spontaneous
  Country: US (occurrence: None)
  Receive Date: 20211207
  Receipt Date: 20211207
  Transmission Date: 20220303
  Serious: Yes (Hospitalization)
  Sender: FDA-Public Use
  Company Number: None

PATIENT
  Age: 71 Year
  Sex: Male

DRUGS (8)
  1. CINACALCET HYDROCHLORIDE [Suspect]
     Active Substance: CINACALCET HYDROCHLORIDE
     Indication: Anaemia
     Dosage: FREQUENCY : DAILY;?
     Route: 048
     Dates: start: 20210716
  2. ATORVASTATIN [Concomitant]
  3. CARVEDILOL [Concomitant]
  4. CHLORHEX [Concomitant]
  5. FOLIC ACID [Concomitant]
  6. HYDROXYZ [Concomitant]
  7. NAPROXEN [Concomitant]
     Active Substance: NAPROXEN
  8. VIRT=PHOIS [Concomitant]

REACTIONS (1)
  - COVID-19 [None]

NARRATIVE: CASE EVENT DATE: 20211104
